FAERS Safety Report 17082000 (Version 1)
Quarter: 2019Q4

REPORT INFORMATION
  Report Type: Spontaneous
  Country: US (occurrence: US)
  Receive Date: 20191127
  Receipt Date: 20191127
  Transmission Date: 20200122
  Serious: No
  Sender: FDA-Public Use
  Company Number: US-PFIZER INC-2019420774

PATIENT
  Age: 46 Year
  Sex: Female

DRUGS (1)
  1. XELJANZ [Suspect]
     Active Substance: TOFACITINIB CITRATE
     Indication: MIXED CONNECTIVE TISSUE DISEASE
     Dosage: 5 MG, 2X/DAY
     Route: 048
     Dates: start: 20191020

REACTIONS (4)
  - Oropharyngeal pain [Unknown]
  - Product use in unapproved indication [Unknown]
  - Off label use [Unknown]
  - Chest discomfort [Unknown]
